FAERS Safety Report 20489774 (Version 4)
Quarter: 2022Q3

REPORT INFORMATION
  Report Type: Spontaneous
  Country: JP (occurrence: JP)
  Receive Date: 20220218
  Receipt Date: 20220721
  Transmission Date: 20221027
  Serious: No
  Sender: FDA-Public Use
  Company Number: JP-GLAXOSMITHKLINE-JP2022JPN026998

PATIENT

DRUGS (7)
  1. SOTROVIMAB [Suspect]
     Active Substance: SOTROVIMAB
     Indication: COVID-19
     Dosage: UNK
     Dates: start: 20220210
  2. ASPIRIN [Suspect]
     Active Substance: ASPIRIN
     Indication: Habitual abortion
     Dosage: 100 MG/DAY
     Dates: end: 20220223
  3. ASPIRIN [Suspect]
     Active Substance: ASPIRIN
     Indication: Antinuclear antibody positive
  4. CARBOCYSTEINE [Suspect]
     Active Substance: CARBOCYSTEINE
     Dosage: 1500 MG/DAY
     Dates: end: 20220214
  5. DEXTROMETHORPHAN HYDROBROMIDE [Suspect]
     Active Substance: DEXTROMETHORPHAN HYDROBROMIDE
     Dosage: 90 MG/DAY
     Dates: end: 20220214
  6. CHLORPHENIRAMINE [Suspect]
     Active Substance: CHLORPHENIRAMINE
     Dosage: 6 MG/DAY
     Dates: end: 20220214
  7. CALONAL [Suspect]
     Active Substance: ACETAMINOPHEN
     Dosage: 400 MG/DAY

REACTIONS (2)
  - Vacuum extractor delivery [Recovered/Resolved]
  - Exposure during pregnancy [Unknown]

NARRATIVE: CASE EVENT DATE: 20220330
